FAERS Safety Report 8521104-8 (Version None)
Quarter: 2012Q3

REPORT INFORMATION
  Report Type: 
  Country: None (occurrence: None)
  Receive Date: 20120719
  Receipt Date: 20120710
  Transmission Date: 20120928
  Serious: Yes (Disabling)
  Sender: FDA-Public Use
  Company Number: FR-ROCHE-1086686

PATIENT
  Age: 16 Year
  Sex: Female

DRUGS (1)
  1. ACCUTANE [Suspect]
     Indication: ACNE
     Route: 048

REACTIONS (5)
  - DEPRESSION [None]
  - DIARRHOEA [None]
  - MIGRAINE [None]
  - FIBROMYALGIA [None]
  - HIDRADENITIS [None]
